FAERS Safety Report 6620091-7 (Version None)
Quarter: 2010Q1

REPORT INFORMATION
  Report Type: 
  Country: None (occurrence: None)
  Receive Date: 20100309
  Receipt Date: 20100303
  Transmission Date: 20100710
  Serious: Yes (Hospitalization)
  Sender: FDA-Public Use
  Company Number: FR-ROCHE-688716

PATIENT
  Sex: Female

DRUGS (3)
  1. BONIVA [Suspect]
     Indication: OSTEOPOROSIS
     Route: 048
     Dates: start: 20090101, end: 20091001
  2. PIASCLEDINE [Concomitant]
  3. CACIT D3 [Concomitant]
     Indication: OSTEOPOROSIS
     Dosage: DRUG: CACIT VITAMINE D3

REACTIONS (2)
  - FEMUR FRACTURE [None]
  - SCIATICA [None]
